FAERS Safety Report 23347509 (Version 5)
Quarter: 2024Q4

REPORT INFORMATION
  Report Type: Spontaneous
  Country: US (occurrence: US)
  Receive Date: 20231228
  Receipt Date: 20241125
  Transmission Date: 20250115
  Serious: Yes (Other)
  Sender: PFIZER
  Company Number: US-PFIZER INC-PV202300180236

PATIENT
  Age: 67 Year
  Sex: Female

DRUGS (3)
  1. XELJANZ [Suspect]
     Active Substance: TOFACITINIB CITRATE
     Indication: Arthritis
     Dosage: 5 MG, 2X/DAY
     Dates: start: 2023
  2. XELJANZ [Suspect]
     Active Substance: TOFACITINIB CITRATE
     Indication: Rheumatoid arthritis
     Dosage: MORNING AND NIGHT
  3. PREMARIN [Concomitant]
     Active Substance: ESTROGENS, CONJUGATED
     Indication: Vulvovaginal dryness
     Dosage: DAILY, INSERTS VAGINALLY, USUALLY WITH GLOVED HAND OR FINGER
     Route: 067

REACTIONS (7)
  - Sinus antrostomy [Unknown]
  - Arthritis [Unknown]
  - Drug ineffective [Unknown]
  - Off label use [Unknown]
  - Gastrointestinal stoma complication [Unknown]
  - Fatigue [Unknown]
  - Malabsorption [Unknown]

NARRATIVE: CASE EVENT DATE: 20230101
